FAERS Safety Report 21570726 (Version 1)
Quarter: 2022Q4

REPORT INFORMATION
  Report Type: Spontaneous
  Country: US (occurrence: US)
  Receive Date: 20221109
  Receipt Date: 20221109
  Transmission Date: 20230113
  Serious: Yes (Disabling)
  Sender: FDA-Public Use
  Company Number: US-SA-SAC20221104001113

PATIENT
  Age: 60 Year
  Sex: Female

DRUGS (1)
  1. AUBAGIO [Suspect]
     Active Substance: TERIFLUNOMIDE
     Indication: Multiple sclerosis
     Dosage: 14 MG, QD
     Route: 048
     Dates: start: 20210908

REACTIONS (4)
  - Gait disturbance [Unknown]
  - Pain in extremity [Unknown]
  - Muscular weakness [Unknown]
  - Visual impairment [Unknown]
